FAERS Safety Report 10167719 (Version 2)
Quarter: 2014Q2

REPORT INFORMATION
  Report Type: Spontaneous
  Country: US (occurrence: US)
  Receive Date: 20140512
  Receipt Date: 20140620
  Transmission Date: 20141212
  Serious: Yes (Other)
  Sender: FDA-Public Use
  Company Number: US-GILEAD-2014-0101840

PATIENT
  Age: 58 Year
  Sex: Male
  Weight: 117.91 kg

DRUGS (9)
  1. SOVALDI [Suspect]
     Indication: HEPATITIS C
     Dosage: 400 MG, QD
     Route: 048
     Dates: start: 20140324, end: 20140616
  2. RIBAVIRIN [Suspect]
     Indication: HEPATITIS C
     Dosage: 1400 MG, QD
     Route: 048
     Dates: start: 20140324
  3. RIBAVIRIN [Suspect]
     Dosage: 1000 MG, QD
     Route: 048
     Dates: end: 20140616
  4. PEGINTERFERON ALFA [Suspect]
     Indication: HEPATITIS C
     Dosage: 180 ?G, Q1WK
     Route: 058
     Dates: start: 20140324, end: 20140616
  5. WARFARIN [Concomitant]
     Indication: ATRIAL FIBRILLATION
     Dosage: AS DIRECTED
     Route: 048
     Dates: start: 20130816
  6. METOPROLOL [Concomitant]
     Indication: ATRIAL FIBRILLATION
     Dosage: 25 MG, BID
     Route: 048
     Dates: start: 20130816
  7. FLECAINIDE [Concomitant]
     Indication: ATRIAL FIBRILLATION
     Dosage: 100 MG, BID
     Route: 048
     Dates: start: 20130816, end: 20140411
  8. FLECAINIDE [Concomitant]
     Dosage: 150 MG, BID
     Route: 048
     Dates: start: 20140411
  9. METFORMIN [Concomitant]
     Indication: DIABETES MELLITUS
     Dosage: 1 G, BID
     Route: 048
     Dates: start: 201208

REACTIONS (4)
  - Atrial fibrillation [Recovered/Resolved]
  - Anaemia [Unknown]
  - Fatigue [Unknown]
  - Rash [Unknown]
